FAERS Safety Report 7013220-7 (Version None)
Quarter: 2010Q3

REPORT INFORMATION
  Report Type: 
  Country: None (occurrence: None)
  Receive Date: 20100909
  Receipt Date: 20100726
  Transmission Date: 20110219
  Serious: Yes (Other)
  Sender: FDA-Public Use
  Company Number: 2010SP037555

PATIENT
  Sex: Female

DRUGS (2)
  1. SAPHRIS [Suspect]
     Indication: BIPOLAR DISORDER
     Dosage: 10 MG;QD;SL
     Route: 060
     Dates: start: 20100711
  2. LITHIUM (CON.) [Concomitant]

REACTIONS (3)
  - DYSKINESIA [None]
  - FEELING JITTERY [None]
  - HYPOAESTHESIA ORAL [None]
